FAERS Safety Report 8800991 (Version 2)
Quarter: 2015Q1

REPORT INFORMATION
  Report Type: Report from Study
  Country: US (occurrence: US)
  Receive Date: 20120920
  Receipt Date: 20150227
  Transmission Date: 20150721
  Serious: Yes (Death)
  Sender: FDA-Public Use
  Company Number: US-ROCHE-1095358

PATIENT
  Age: 79 Year
  Sex: Male
  Weight: 67.27 kg

DRUGS (8)
  1. CARBOPLATIN. [Concomitant]
     Active Substance: CARBOPLATIN
     Dosage: RECEIVED ON 27/AUG/2008 OVER 1 HR IN 250 ML OF 0.9% SODIUM CHLORIDE
     Route: 042
  2. HEPARIN [Concomitant]
     Active Substance: HEPARIN SODIUM
     Dosage: RECEIVED ON 27/AUG/2008 5 ML (100 UNITS/ML)
     Route: 065
  3. DEXAMETHASONE. [Concomitant]
     Active Substance: DEXAMETHASONE
     Dosage: RECEIVED ON 27/AUG/2008 OVER 35 MIN IN 50 ML OF 0.9% SODIUM CHLORIDE
     Route: 042
  4. FERRLECIT (UNITED STATES) [Concomitant]
     Dosage: RECEIVED ON 27/AUG/2008 OVER 1 HR
     Route: 042
  5. ALOXI [Concomitant]
     Active Substance: PALONOSETRON HYDROCHLORIDE
     Dosage: RECEIVED ON 27/AUG/2008 OVER 35 MINS
     Route: 042
  6. GEMZAR [Concomitant]
     Active Substance: GEMCITABINE HYDROCHLORIDE
     Dosage: RECEIVED ON 27/AUG/2008 OVER 35 MINS IN 150 ML OF 0.9% SODIUM CHLORIDE.
     Route: 042
  7. AVASTIN [Suspect]
     Active Substance: BEVACIZUMAB
     Indication: METASTASES TO LUNG
  8. AVASTIN [Suspect]
     Active Substance: BEVACIZUMAB
     Indication: BLADDER CANCER
     Dosage: OVER 35 MINS
     Route: 042
     Dates: start: 20080827

REACTIONS (2)
  - Death [Fatal]
  - Off label use [Unknown]

NARRATIVE: CASE EVENT DATE: 200809
